FAERS Safety Report 10197201 (Version 1)
Quarter: 2014Q2

REPORT INFORMATION
  Report Type: Spontaneous
  Country: US (occurrence: US)
  Receive Date: 20140527
  Receipt Date: 20140527
  Transmission Date: 20141212
  Serious: Yes (Hospitalization)
  Sender: FDA-Public Use
  Company Number: US-GLAXOSMITHKLINE-A1073788A

PATIENT
  Age: 54 Year
  Sex: Female

DRUGS (3)
  1. PROMACTA [Suspect]
     Indication: PRODUCT USED FOR UNKNOWN INDICATION
     Route: 048
     Dates: start: 2010, end: 2010
  2. ANTIHYPERTENSIVE [Concomitant]
  3. UNSPECIFIED MEDICATIONS [Concomitant]

REACTIONS (4)
  - Arthropathy [Unknown]
  - Condition aggravated [Unknown]
  - Fall [Unknown]
  - Platelet count decreased [Not Recovered/Not Resolved]
